FAERS Safety Report 9153038 (Version 4)
Quarter: 2013Q2

REPORT INFORMATION
  Report Type: Spontaneous
  Country: GB (occurrence: GB)
  Receive Date: 20130311
  Receipt Date: 20130406
  Transmission Date: 20140414
  Serious: Yes (Other)
  Sender: FDA-Public Use
  Company Number: GB-ACCORD-016643

PATIENT
  Age: 46 Year
  Sex: Female

DRUGS (24)
  1. ANTI-D IMMUNOGLOBULIN [Concomitant]
     Dosage: PL 03473/0022
     Route: 058
     Dates: start: 20110902, end: 20110902
  2. NORETHISTERONE [Suspect]
     Indication: PRODUCT USED FOR UNKNOWN INDICATION
     Route: 065
     Dates: start: 20110818
  3. CODEINE [Concomitant]
     Route: 048
     Dates: start: 20110817, end: 20110820
  4. PARACETAMOL [Concomitant]
     Route: 048
     Dates: start: 20110817, end: 20110828
  5. DAUNORUBICIN [Suspect]
     Indication: ACUTE MYELOID LEUKAEMIA
     Route: 065
     Dates: start: 20110819, end: 20110828
  6. MORPHINE SULPHATE [Concomitant]
  7. PHENOXYMETHYLPENICILLIN [Suspect]
     Indication: PRODUCT USED FOR UNKNOWN INDICATION
  8. ETOPOSIDE [Suspect]
     Indication: ACUTE MYELOID LEUKAEMIA
     Route: 065
     Dates: start: 20110819, end: 20110828
  9. ORAMORPH [Concomitant]
     Dosage: 5-10 MG
     Route: 042
     Dates: start: 20110822, end: 20110823
  10. ALLOPURINOL [Concomitant]
     Route: 048
     Dates: start: 20110828, end: 20110908
  11. LORAZEPAM [Concomitant]
     Route: 048
     Dates: start: 20110914, end: 20110914
  12. TAZOCIN [Suspect]
     Indication: PRODUCT USED FOR UNKNOWN INDICATION
     Route: 042
     Dates: start: 20110822, end: 20110825
  13. CYCLIZINE [Concomitant]
     Route: 042
     Dates: start: 20110903, end: 20110914
  14. VANCOMYCIN [Suspect]
     Indication: PRODUCT USED FOR UNKNOWN INDICATION
     Route: 065
     Dates: start: 20110904, end: 20110909
  15. MEROPENEM [Suspect]
     Indication: PRODUCT USED FOR UNKNOWN INDICATION
     Route: 042
     Dates: start: 20110905, end: 20110910
  16. CYTARABINE [Suspect]
     Indication: ACUTE MYELOID LEUKAEMIA
     Route: 065
     Dates: start: 20110819, end: 20110828
  17. ONDANSETRON [Concomitant]
     Route: 048
     Dates: start: 20110822, end: 20110828
  18. TRANEXAMIC ACID [Concomitant]
     Route: 048
     Dates: start: 20110831, end: 20110908
  19. GEMTUZUMAB OZOGAMICIN [Suspect]
     Indication: ACUTE MYELOID LEUKAEMIA
     Route: 065
     Dates: start: 20110819, end: 20110828
  20. ACICLOVIR [Concomitant]
     Route: 048
  21. DOCUSATE SODIUM [Concomitant]
     Route: 048
     Dates: start: 20110823, end: 20110914
  22. AMBISOME [Suspect]
     Indication: PRODUCT USED FOR UNKNOWN INDICATION
     Route: 042
     Dates: start: 20110831, end: 20110831
  23. OMEPRAZOLE [Concomitant]
     Route: 048
     Dates: start: 20110820, end: 20110908
  24. RANITIDINE [Concomitant]
     Route: 048
     Dates: start: 20110908, end: 20110912

REACTIONS (3)
  - Alanine aminotransferase increased [Recovered/Resolved]
  - Platelet count increased [Recovered/Resolved]
  - Off label use [Unknown]
